FAERS Safety Report 5057992-X (Version None)
Quarter: 2006Q3

REPORT INFORMATION
  Report Type: 
  Country: None (occurrence: None)
  Receive Date: 20060721
  Receipt Date: 20060501
  Transmission Date: 20061208
  Serious: No
  Sender: FDA-Public Use
  Company Number: US-GLAXOSMITHKLINE-A0604308A

PATIENT
  Sex: Male

DRUGS (2)
  1. AVANDIA [Suspect]
     Route: 048
  2. METFORMIN [Suspect]
     Indication: DRUG USE FOR UNKNOWN INDICATION
     Route: 065

REACTIONS (2)
  - DRUG INTOLERANCE [None]
  - GASTRIC DISORDER [None]
